FAERS Safety Report 10628122 (Version 1)
Quarter: 2014Q4

REPORT INFORMATION
  Report Type: Spontaneous
  Country: US (occurrence: US)
  Receive Date: 20141205
  Receipt Date: 20141205
  Transmission Date: 20150529
  Serious: No
  Sender: FDA-Public Use
  Company Number: US-BRISTOL-MYERS SQUIBB COMPANY-21119169

PATIENT
  Age: 57 Year
  Sex: Male

DRUGS (1)
  1. COUMADIN [Suspect]
     Active Substance: WARFARIN SODIUM
     Dosage: 1DF: 5MG 2/1/WK AND 7.5MG 5/1/WK; 2MG
     Dates: start: 1989

REACTIONS (1)
  - Drug dose omission [Unknown]
